FAERS Safety Report 15429858 (Version 2)
Quarter: 2018Q3

REPORT INFORMATION
  Report Type: Report from Study
  Country: None (occurrence: ES)
  Receive Date: 20180926
  Receipt Date: 20180927
  Transmission Date: 20181010
  Serious: Yes (Hospitalization, Other)
  Sender: FDA-Public Use
  Company Number: ES-ABBVIE-18S-144-2494752-00

PATIENT
  Age: 66 Year
  Sex: Male
  Weight: 84 kg

DRUGS (1)
  1. DUODOPA [Suspect]
     Active Substance: CARBIDOPA\LEVODOPA
     Indication: PARKINSON^S DISEASE
     Dosage: CD 6.9ML/H, 24 HOURS PERFUSION
     Route: 050
     Dates: start: 20170511

REACTIONS (4)
  - Polyneuropathy [Recovering/Resolving]
  - Sensory loss [Recovering/Resolving]
  - Vitamin B12 deficiency [Not Recovered/Not Resolved]
  - Muscle spasms [Not Recovered/Not Resolved]

NARRATIVE: CASE EVENT DATE: 201809
